FAERS Safety Report 4384796-3 (Version None)
Quarter: 2004Q2

REPORT INFORMATION
  Report Type: 
  Country: None (occurrence: None)
  Receive Date: 20040621
  Receipt Date: 20040607
  Transmission Date: 20050107
  Serious: Yes (Other)
  Sender: FDA-Public Use
  Company Number: 200410322BFR

PATIENT
  Age: 68 Year
  Sex: Male

DRUGS (9)
  1. CIPROFLOXACIN [Suspect]
     Indication: CATHETER RELATED INFECTION
     Dosage: 500 MG, TOTAL DAILY, ORAL
     Route: 048
     Dates: start: 20040323, end: 20040403
  2. CIPROFLOXACIN [Suspect]
     Indication: CATHETER RELATED INFECTION
     Dosage: 500 MG, TOTAL DAILY, ORAL
     Route: 048
     Dates: start: 20040413, end: 20040425
  3. COZAAR [Concomitant]
  4. FELODIPINE [Concomitant]
  5. AVLOCARDYL [Concomitant]
  6. RIVOTRIL [Concomitant]
  7. MOGADON [Concomitant]
  8. STILNOX [Concomitant]
  9. TEMGESIC ^SCHERING-PLOUGH^ [Concomitant]

REACTIONS (8)
  - ARTHRALGIA [None]
  - CATHETER RELATED INFECTION [None]
  - DIPLOPIA [None]
  - HEADACHE [None]
  - KERATITIS [None]
  - STAPHYLOCOCCAL INFECTION [None]
  - VISUAL DISTURBANCE [None]
  - VITH NERVE PARALYSIS [None]
